FAERS Safety Report 13259954 (Version 1)
Quarter: 2017Q1

REPORT INFORMATION
  Report Type: Spontaneous
  Country: US (occurrence: US)
  Receive Date: 20170222
  Receipt Date: 20170222
  Transmission Date: 20170428
  Serious: No
  Sender: FDA-Public Use
  Company Number: US-TEVA-632130USA

PATIENT
  Age: 43 Year
  Sex: Female
  Weight: 88.98 kg

DRUGS (1)
  1. AMPHETAMINE W/DEXTROAMPHETAMINE [Suspect]
     Active Substance: AMPHETAMINE SULFATE\DEXTROAMPHETAMINE
     Indication: ATTENTION DEFICIT/HYPERACTIVITY DISORDER
     Dosage: SPLITTING PILLS FOR A 45 MG DOSE
     Route: 065

REACTIONS (9)
  - Muscle spasms [Unknown]
  - Drug ineffective [Unknown]
  - Suspected counterfeit product [Unknown]
  - Muscle twitching [Unknown]
  - Hypoaesthesia [Unknown]
  - Product substitution issue [Unknown]
  - Hypoaesthesia oral [Unknown]
  - Headache [Unknown]
  - Wrong technique in product usage process [Unknown]

NARRATIVE: CASE EVENT DATE: 201601
